FAERS Safety Report 8493209-1 (Version None)
Quarter: 2012Q3

REPORT INFORMATION
  Report Type: 
  Country: None (occurrence: None)
  Receive Date: 20120706
  Receipt Date: 20120626
  Transmission Date: 20120928
  Serious: Yes (Other)
  Sender: FDA-Public Use
  Company Number: FR-B.I. PHARMACEUTICALS,INC./RIDGEFIELD-2012-FF-00822FF

PATIENT
  Sex: Male

DRUGS (2)
  1. MODOPAR [Suspect]
     Indication: PARKINSON'S DISEASE
     Route: 048
     Dates: start: 20090901
  2. PRAMIPEXOLE DIHYDROCHLORIDE [Suspect]
     Indication: PARKINSON'S DISEASE
     Route: 048
     Dates: start: 20081001

REACTIONS (3)
  - PATHOLOGICAL GAMBLING [None]
  - HYPERSEXUALITY [None]
  - IMPULSE-CONTROL DISORDER [None]
